FAERS Safety Report 21392598 (Version 3)
Quarter: 2022Q4

REPORT INFORMATION
  Report Type: Spontaneous
  Country: BR (occurrence: BR)
  Receive Date: 20220929
  Receipt Date: 20221019
  Transmission Date: 20230112
  Serious: Yes (Hospitalization, Other)
  Sender: FDA-Public Use
  Company Number: BR-002147023-NVSC2022BR218766

PATIENT

DRUGS (12)
  1. RUXOLITINIB [Suspect]
     Active Substance: RUXOLITINIB
     Indication: Leukaemia
     Dosage: 2 DOSAGE FORM, QD
     Route: 065
     Dates: start: 201909
  2. RUXOLITINIB [Suspect]
     Active Substance: RUXOLITINIB
     Indication: Myelofibrosis
     Dosage: 4 DOSAGE FORM, BID (STOP DATE: 2 MONTHS AGO)
     Route: 048
     Dates: start: 2019
  3. RUXOLITINIB [Suspect]
     Active Substance: RUXOLITINIB
     Dosage: 2 DOSAGE FORM, BID (2 MONTHS AGO)
     Route: 048
     Dates: end: 20220929
  4. DOXAZOSIN [Suspect]
     Active Substance: DOXAZOSIN MESYLATE
     Indication: Prostatic disorder
     Dosage: 1 DOSAGE FORM, QOD
     Route: 065
  5. DOXAZOSIN [Suspect]
     Active Substance: DOXAZOSIN MESYLATE
     Dosage: 1 DOSAGE FORM, (1 DAY YES OTHER NO)
     Route: 048
     Dates: end: 20220929
  6. OMEPRAZOLE [Concomitant]
     Active Substance: OMEPRAZOLE
     Indication: Prophylaxis
     Dosage: UNK
     Route: 065
  7. OMEPRAZOLE [Concomitant]
     Active Substance: OMEPRAZOLE
     Dosage: 1 DOSAGE FORM, QD
     Route: 048
     Dates: start: 2019
  8. FERROUS SULFATE [Concomitant]
     Active Substance: FERROUS SULFATE
     Indication: Product used for unknown indication
     Dosage: UNK
     Route: 065
  9. FERROUS SULFATE [Concomitant]
     Active Substance: FERROUS SULFATE
     Dosage: 1 DOSAGE FORM, QD,(START DATE: 6 MONTH AGO, STOP DATE: SOME MONTHS AGO)
     Route: 048
  10. ERGOCALCIFEROL [Concomitant]
     Active Substance: ERGOCALCIFEROL
     Indication: Prophylaxis
     Dosage: 1 DOSAGE FORM, QW (START DATE: 6 MONTHS AGO)
     Route: 048
  11. HYDROXYUREA [Concomitant]
     Active Substance: HYDROXYUREA
     Indication: Myelofibrosis
     Dosage: 1 DOSAGE FORM, QD (START DATE: 2 MONTHS AGO)
     Route: 048
     Dates: end: 20220929
  12. APURINOL [Concomitant]
     Indication: Prophylaxis
     Dosage: 1 DOSAGE FORM, QD (START DATE: 1 MONTH AGO)
     Route: 048

REACTIONS (7)
  - White blood cell disorder [Recovering/Resolving]
  - Nasopharyngitis [Recovered/Resolved]
  - Headache [Recovered/Resolved]
  - Pancreatic enzymes increased [Not Recovered/Not Resolved]
  - Myelofibrosis [Not Recovered/Not Resolved]
  - Platelet count increased [Unknown]
  - Platelet count decreased [Recovering/Resolving]

NARRATIVE: CASE EVENT DATE: 20220929
